FAERS Safety Report 6093297-6 (Version None)
Quarter: 2009Q1

REPORT INFORMATION
  Report Type: 
  Country: None (occurrence: None)
  Receive Date: 20090226
  Receipt Date: 20090218
  Transmission Date: 20090719
  Serious: Yes (Hospitalization, Other)
  Sender: FDA-Public Use
  Company Number: US-AMGEN-QUU319713

PATIENT
  Sex: Female
  Weight: 97.6 kg

DRUGS (12)
  1. ENBREL [Suspect]
     Indication: PSORIASIS
     Route: 058
     Dates: start: 20080520, end: 20080923
  2. ENBREL [Suspect]
     Indication: PSORIATIC ARTHROPATHY
  3. LIPITOR [Concomitant]
     Route: 048
  4. GLUCOPHAGE [Concomitant]
     Route: 048
  5. PROZAC [Concomitant]
  6. LEVOTHYROXINE SODIUM [Concomitant]
     Route: 048
  7. DIOVAN [Concomitant]
     Route: 048
  8. TRAZODONE HCL [Concomitant]
     Route: 048
  9. VOLTAREN [Concomitant]
     Route: 048
  10. VICODIN [Concomitant]
  11. CLONAZEPAM [Concomitant]
     Route: 048
  12. OMEPRAZOLE [Concomitant]
     Route: 048

REACTIONS (12)
  - CONFUSIONAL STATE [None]
  - DELIRIUM [None]
  - ENDOTRACHEAL INTUBATION [None]
  - HEART RATE INCREASED [None]
  - LACTIC ACIDOSIS [None]
  - MICROCYTIC ANAEMIA [None]
  - PSORIASIS [None]
  - RENAL FAILURE ACUTE [None]
  - SEPSIS [None]
  - SEPTIC SHOCK [None]
  - THROMBOCYTOPENIA [None]
  - URINARY TRACT INFECTION [None]
